FAERS Safety Report 16057978 (Version 1)
Quarter: 2019Q1

REPORT INFORMATION
  Report Type: Spontaneous
  Country: US (occurrence: US)
  Receive Date: 20190311
  Receipt Date: 20190311
  Transmission Date: 20190418
  Serious: Yes (Other)
  Sender: FDA-Public Use
  Company Number: US-ELI_LILLY_AND_COMPANY-US201903000766

PATIENT
  Sex: Female

DRUGS (6)
  1. CYMBALTA [Suspect]
     Active Substance: DULOXETINE HYDROCHLORIDE
     Indication: NEUROPATHY PERIPHERAL
     Dosage: 60 MG, DAILY
     Route: 048
  2. CYMBALTA [Suspect]
     Active Substance: DULOXETINE HYDROCHLORIDE
     Indication: DEPRESSION
  3. CYMBALTA [Suspect]
     Active Substance: DULOXETINE HYDROCHLORIDE
     Indication: NEUROPATHY PERIPHERAL
     Dosage: 30 MG, DAILY
     Route: 048
     Dates: end: 201810
  4. DULOXETINE. [Suspect]
     Active Substance: DULOXETINE
     Indication: NEUROPATHY PERIPHERAL
     Dosage: UNK, UNKNOWN
     Route: 065
     Dates: start: 2018, end: 201810
  5. CYMBALTA [Suspect]
     Active Substance: DULOXETINE HYDROCHLORIDE
     Indication: DEPRESSION
  6. DULOXETINE. [Suspect]
     Active Substance: DULOXETINE
     Indication: DEPRESSION

REACTIONS (6)
  - Suicidal ideation [Recovered/Resolved]
  - Hypersensitivity [Recovered/Resolved]
  - Alcohol abuse [Recovered/Resolved]
  - Urinary bladder haemorrhage [Recovered/Resolved]
  - Bladder hypertrophy [Recovered/Resolved]
  - Bladder spasm [Recovered/Resolved]

NARRATIVE: CASE EVENT DATE: 2018
